FAERS Safety Report 14849996 (Version 3)
Quarter: 2018Q4

REPORT INFORMATION
  Report Type: Report from Study
  Country: DE (occurrence: DE)
  Receive Date: 20180504
  Receipt Date: 20181227
  Transmission Date: 20190204
  Serious: Yes (Hospitalization)
  Sender: FDA-Public Use
  Company Number: DE-BIOVERATIV-2018BV000203

PATIENT
  Age: 58 Year
  Sex: Male
  Weight: 76 kg

DRUGS (23)
  1. RECOMBINANT FACTOR IX FC FUSION/EFTRENONACOG ALFA [Suspect]
     Active Substance: EFTRENONACOG ALFA
     Indication: FACTOR IX DEFICIENCY
     Dosage: 4000 IU
     Route: 042
     Dates: start: 20170123, end: 20171208
  2. RECOMBINANT FACTOR IX FC FUSION/EFTRENONACOG ALFA [Suspect]
     Active Substance: EFTRENONACOG ALFA
     Dosage: 4000 IU, Q10D
     Route: 042
     Dates: start: 20171218
  3. RECOMBINANT FACTOR IX FC FUSION/EFTRENONACOG ALFA [Suspect]
     Active Substance: EFTRENONACOG ALFA
     Dosage: 18000 IU, COLON CARCINOMA RESECTION
     Route: 042
     Dates: start: 20180405
  4. RECOMBINANT FACTOR IX FC FUSION/EFTRENONACOG ALFA [Suspect]
     Active Substance: EFTRENONACOG ALFA
     Dosage: 7000 IU, SKIN BIPOSY
     Route: 042
     Dates: start: 20170324
  5. ELOMEPRAZOL [Concomitant]
     Indication: GASTROOESOPHAGEAL REFLUX DISEASE
     Route: 048
     Dates: start: 2015
  6. RECOMBINANT FACTOR IX FC FUSION/EFTRENONACOG ALFA [Suspect]
     Active Substance: EFTRENONACOG ALFA
     Dosage: 4000 IU, QOD
     Route: 042
     Dates: start: 201804
  7. RECOMBINANT FACTOR IX FC FUSION/EFTRENONACOG ALFA [Suspect]
     Active Substance: EFTRENONACOG ALFA
     Dosage: 5000 IU
     Route: 065
  8. RECOMBINANT FACTOR IX FC FUSION/EFTRENONACOG ALFA [Suspect]
     Active Substance: EFTRENONACOG ALFA
     Dosage: 2000 IU
     Route: 065
  9. RITONAVIR. [Concomitant]
     Active Substance: RITONAVIR
     Indication: ANTIRETROVIRAL THERAPY
     Route: 048
     Dates: start: 2009
  10. MOVICOL [Concomitant]
     Active Substance: POLYETHYLENE GLYCOL 3350\POTASSIUM CHLORIDE\SODIUM BICARBONATE\SODIUM CHLORIDE
     Indication: PRODUCT USED FOR UNKNOWN INDICATION
     Route: 048
  11. TRANEXAMIC ACID. [Concomitant]
     Active Substance: TRANEXAMIC ACID
     Indication: PRODUCT USED FOR UNKNOWN INDICATION
     Dosage: 2 TABLTES 3X DAILY
     Route: 048
  12. NEXIUM [Concomitant]
     Active Substance: ESOMEPRAZOLE MAGNESIUM
     Indication: PRODUCT USED FOR UNKNOWN INDICATION
     Dosage: 2 TABLETS
     Route: 065
  13. RECOMBINANT FACTOR IX FC FUSION/EFTRENONACOG ALFA [Suspect]
     Active Substance: EFTRENONACOG ALFA
     Dosage: 4000 IU
     Route: 042
     Dates: start: 201804
  14. IMMUNINE [Concomitant]
     Indication: PRODUCT USED FOR UNKNOWN INDICATION
     Dosage: 2-3 TIMES PER WEEK
     Route: 065
     Dates: start: 20160101, end: 20170120
  15. MUCOFAL APFEL [Concomitant]
     Indication: PRODUCT USED FOR UNKNOWN INDICATION
     Dosage: 3.25 G
     Route: 065
  16. RECOMBINANT FACTOR IX FC FUSION/EFTRENONACOG ALFA [Suspect]
     Active Substance: EFTRENONACOG ALFA
     Dosage: 4000 IU, Q3D
     Route: 042
     Dates: start: 201804, end: 20180424
  17. TRANEXAMIC ACID. [Concomitant]
     Active Substance: TRANEXAMIC ACID
     Dosage: 2 TABLTES 3X DAILYSHOULD CONTINUE UNTIL WOULD IS COMPLETELY HEALED
     Route: 048
  18. RECOMBINANT FACTOR IX FC FUSION/EFTRENONACOG ALFA [Suspect]
     Active Substance: EFTRENONACOG ALFA
     Dosage: 4000 IU
     Route: 042
     Dates: start: 20180403
  19. RECOMBINANT FACTOR IX FC FUSION/EFTRENONACOG ALFA [Suspect]
     Active Substance: EFTRENONACOG ALFA
     Dosage: 4000 IU, OPERATIVE REVISION BECAUSE OF SUTURE INSUFFICIENCY
     Route: 042
     Dates: start: 20180410
  20. FOSAMPRENAVIR [Concomitant]
     Active Substance: FOSAMPRENAVIR
     Indication: ANTIRETROVIRAL THERAPY
     Route: 048
     Dates: start: 2009
  21. IMODIUM [Concomitant]
     Active Substance: LOPERAMIDE HYDROCHLORIDE
     Indication: PRODUCT USED FOR UNKNOWN INDICATION
     Dosage: 1 TABLET
     Route: 065
  22. NOVALGIN (METAMIZOLE SODIUM) [Concomitant]
     Active Substance: METAMIZOLE SODIUM
     Indication: PRODUCT USED FOR UNKNOWN INDICATION
     Dosage: 500  MG
     Route: 065
  23. TRUVADA [Concomitant]
     Active Substance: EMTRICITABINE\TENOFOVIR DISOPROXIL FUMARATE
     Indication: ANTIRETROVIRAL THERAPY
     Route: 048
     Dates: start: 2009

REACTIONS (1)
  - Rectal cancer [Recovered/Resolved]

NARRATIVE: CASE EVENT DATE: 20180402
